FAERS Safety Report 8575907-4 (Version None)
Quarter: 2012Q2

REPORT INFORMATION
  Report Type: 
  Country: None (occurrence: None)
  Receive Date: 20120423
  Receipt Date: 20100323
  Transmission Date: 20120825
  Serious: Yes (Hospitalization)
  Sender: FDA-Public Use
  Company Number: PHEH2010US01681

PATIENT
  Age: 20 Year
  Sex: Male
  Weight: 68.5 kg

DRUGS (4)
  1. FOLIC ACID [Concomitant]
  2. HYDROCODONE BITARTRATE [Concomitant]
  3. EXJADE [Suspect]
     Indication: IRON OVERLOAD
     Dosage: 1250 MG, QD, ORAL
     Route: 048
     Dates: start: 20090501
  4. HYDROXYUREA [Concomitant]

REACTIONS (4)
  - CHILLS [None]
  - SICKLE CELL ANAEMIA WITH CRISIS [None]
  - PAIN [None]
  - PYREXIA [None]
